FAERS Safety Report 8828011 (Version 2)
Quarter: 2012Q4

REPORT INFORMATION
  Report Type: Report from Study
  Country: BE (occurrence: BE)
  Receive Date: 20121005
  Receipt Date: 20121015
  Transmission Date: 20130627
  Serious: Yes (Death, Hospitalization)
  Sender: FDA-Public Use
  Company Number: BE-MILLENNIUM PHARMACEUTICALS, INC.-2012-06700

PATIENT

DRUGS (5)
  1. VELCADE [Suspect]
     Indication: MULTIPLE MYELOMA
     Dosage: 2.6 mg, Cyclic
     Route: 042
     Dates: start: 20081229, end: 20090306
  2. PREDNISOLONE [Concomitant]
     Indication: MULTIPLE MYELOMA
     Dosage: 20 mg, UNK
     Route: 048
     Dates: start: 20081229, end: 20090306
  3. MELPHALAN [Concomitant]
     Indication: MULTIPLE MYELOMA
     Dosage: UNK
     Route: 042
     Dates: start: 20081229, end: 20090306
  4. REVLIMID [Concomitant]
     Dosage: UNK
     Dates: start: 20090313, end: 20090607
  5. DEXAMETHASONE [Concomitant]
     Dosage: UNK
     Dates: start: 20090313, end: 20090607

REACTIONS (4)
  - Multi-organ failure [Fatal]
  - Renal failure [Fatal]
  - Hyperviscosity syndrome [Recovered/Resolved with Sequelae]
  - Pneumonia [Recovered/Resolved]
